FAERS Safety Report 7603700-5 (Version None)
Quarter: 2011Q3

REPORT INFORMATION
  Report Type: 
  Country: None (occurrence: None)
  Receive Date: 20110711
  Receipt Date: 20110711
  Transmission Date: 20111222
  Serious: No
  Sender: FDA-Public Use
  Company Number: None

PATIENT
  Age: 23 Year
  Sex: Male
  Weight: 68 kg

DRUGS (1)
  1. PROPECIA [Suspect]
     Indication: ALOPECIA
     Dosage: 1 MG PER DAY PO
     Route: 048
     Dates: start: 20090326, end: 20090406

REACTIONS (9)
  - ERECTILE DYSFUNCTION [None]
  - ANXIETY [None]
  - FEELING ABNORMAL [None]
  - PENIS DISORDER [None]
  - LOSS OF LIBIDO [None]
  - EDUCATIONAL PROBLEM [None]
  - MALE ORGASMIC DISORDER [None]
  - HEADACHE [None]
  - IMPAIRED WORK ABILITY [None]
